FAERS Safety Report 22531318 (Version 2)
Quarter: 2023Q2

REPORT INFORMATION
  Report Type: Spontaneous
  Country: CN (occurrence: CN)
  Receive Date: 20230607
  Receipt Date: 20230614
  Transmission Date: 20230721
  Serious: Yes (Hospitalization, Other)
  Sender: FDA-Public Use
  Company Number: CN-MLMSERVICE-2023053043165141

PATIENT
  Age: 51 Year
  Sex: Male

DRUGS (2)
  1. CISPLATIN [Suspect]
     Active Substance: CISPLATIN
     Indication: Nasopharyngeal cancer
     Dates: start: 201702, end: 201705
  2. DOCETAXEL [Suspect]
     Active Substance: DOCETAXEL
     Indication: Nasopharyngeal cancer
     Dates: start: 201702, end: 201705

REACTIONS (2)
  - Paranasal sinus inflammation [Recovering/Resolving]
  - Otitis media [Unknown]

NARRATIVE: CASE EVENT DATE: 20190101
